FAERS Safety Report 10045655 (Version 1)
Quarter: 2014Q1

REPORT INFORMATION
  Report Type: Spontaneous
  Country: US (occurrence: US)
  Receive Date: 20140328
  Receipt Date: 20140328
  Transmission Date: 20141002
  Serious: Yes (Hospitalization)
  Sender: FDA-Public Use
  Company Number: US-ASTRAZENECA-2014SE20009

PATIENT
  Sex: Female

DRUGS (2)
  1. FASLODEX [Suspect]
     Route: 030
  2. COUMADIN [Suspect]
     Route: 065

REACTIONS (1)
  - Haemorrhage [Unknown]
